FAERS Safety Report 7438337-4 (Version None)
Quarter: 2011Q2

REPORT INFORMATION
  Report Type: 
  Country: None (occurrence: None)
  Receive Date: 20110418
  Receipt Date: 20110408
  Transmission Date: 20111010
  Serious: Yes (Other)
  Sender: FDA-Public Use
  Company Number: 2011077945

PATIENT
  Sex: Female

DRUGS (3)
  1. FRAGMIN [Suspect]
     Dates: start: 20110315
  2. FRAGMIN [Suspect]
     Dates: start: 20110309
  3. DEXAMETHASONE [Concomitant]

REACTIONS (4)
  - BLOOD GLUCOSE FLUCTUATION [None]
  - BLOOD GLUCOSE INCREASED [None]
  - CYSTITIS [None]
  - STRESS [None]
